FAERS Safety Report 6766126-2 (Version None)
Quarter: 2010Q2

REPORT INFORMATION
  Report Type: 
  Country: None (occurrence: None)
  Receive Date: 20100611
  Receipt Date: 20100604
  Transmission Date: 20101027
  Serious: Yes (Hospitalization)
  Sender: FDA-Public Use
  Company Number: NL-SANOFI-AVENTIS-2010SA032238

PATIENT
  Age: 54 Year
  Sex: Female

DRUGS (2)
  1. ARAVA [Suspect]
     Route: 048
     Dates: start: 20100525, end: 20100525
  2. ARAVA [Suspect]
     Route: 048
     Dates: start: 20100526, end: 20100526

REACTIONS (1)
  - HEPATITIS [None]
